FAERS Safety Report 8796432 (Version 2)
Quarter: 2012Q4

REPORT INFORMATION
  Report Type: 
  Country: US (occurrence: US)
  Receive Date: 20120919
  Receipt Date: 20121101
  Transmission Date: 20130627
  Serious: Yes (Hospitalization)
  Sender: FDA-Public Use
  Company Number: US-ASTRAZENECA-2012SE71129

PATIENT
  Age: 58 Year
  Sex: Female

DRUGS (9)
  1. CRESTOR [Suspect]
     Route: 048
  2. PLAVIX [Concomitant]
  3. ZOLOFT [Concomitant]
  4. R HUMULIN [Concomitant]
  5. LANTUS [Concomitant]
     Dates: start: 201209
  6. REGULAR [Concomitant]
  7. LEVEMIR [Concomitant]
  8. NOVOLOG [Concomitant]
  9. HUMULIN 30/70 [Concomitant]

REACTIONS (6)
  - Hypoglycaemia [Unknown]
  - Blood glucose increased [Unknown]
  - Pain [Unknown]
  - Tremor [Unknown]
  - Thirst [Unknown]
  - Drug dose omission [Unknown]
